FAERS Safety Report 6543910-1 (Version None)
Quarter: 2010Q1

REPORT INFORMATION
  Report Type: 
  Country: None (occurrence: None)
  Receive Date: 20100120
  Receipt Date: 20100115
  Transmission Date: 20100710
  Serious: Yes (Death)
  Sender: FDA-Public Use
  Company Number: US-JNJFOC-20100105393

PATIENT
  Age: 30 Year
  Sex: Male

DRUGS (6)
  1. IBUPROFEN [Suspect]
     Indication: SUICIDE ATTEMPT
     Route: 048
  2. HYDROXYZINE [Suspect]
     Indication: SUICIDE ATTEMPT
     Route: 048
  3. CEFDINIR [Suspect]
     Indication: SUICIDE ATTEMPT
     Route: 048
  4. SALICYLIC ACID [Suspect]
     Indication: SUICIDE ATTEMPT
     Route: 048
  5. PREDNISONE [Suspect]
     Indication: SUICIDE ATTEMPT
     Route: 048
  6. DIURETIC (NAME UNSPECIFIED) [Suspect]
     Indication: SUICIDE ATTEMPT
     Route: 048

REACTIONS (1)
  - DRUG TOXICITY [None]
